FAERS Safety Report 7794057-8 (Version None)
Quarter: 2011Q4

REPORT INFORMATION
  Report Type: 
  Country: None (occurrence: None)
  Receive Date: 20111004
  Receipt Date: 20110926
  Transmission Date: 20120403
  Serious: Yes (Other)
  Sender: FDA-Public Use
  Company Number: FR-JNJFOC-20110708469

PATIENT
  Sex: Female
  Weight: 74 kg

DRUGS (24)
  1. HETASTARCH IN SODIUM CHLORIDE [Concomitant]
  2. LEVOTHYROXINE SODIUM [Concomitant]
  3. KETAMINE HCL [Concomitant]
  4. KETOPROFEN [Interacting]
     Indication: PRODUCT USED FOR UNKNOWN INDICATION
  5. ASPIRIN [Interacting]
     Indication: PRODUCT USED FOR UNKNOWN INDICATION
  6. EPHEDRINE SUL CAP [Concomitant]
  7. XARELTO [Suspect]
     Indication: HIP ARTHROPLASTY
     Route: 048
     Dates: start: 20100511, end: 20100515
  8. ASPIRIN [Interacting]
     Indication: PRODUCT USED FOR UNKNOWN INDICATION
  9. IRBESARTAN AND HYDROCHLOROTHIAZIDE [Concomitant]
  10. TRANSIPEG [Concomitant]
  11. KETOPROFEN [Concomitant]
  12. LORAZEPAM [Concomitant]
  13. REMIFENTANIL [Concomitant]
  14. NEFOPAM [Concomitant]
  15. TRAMADOL HCL [Concomitant]
  16. ACETAMINOPHEN [Concomitant]
  17. PROPOFOL [Concomitant]
  18. ACETAMINOPHEN [Concomitant]
  19. ASPIRIN [Concomitant]
  20. OMEPRAZOLE [Concomitant]
  21. CEFUROXIME [Concomitant]
  22. MORPHINE [Concomitant]
  23. ALPRAZOLAM [Concomitant]
  24. PANFUREX [Concomitant]

REACTIONS (4)
  - PULMONARY EMBOLISM [None]
  - MELAENA [None]
  - HAEMORRHAGIC ANAEMIA [None]
  - DRUG INTERACTION [None]
